FAERS Safety Report 21679980 (Version 7)
Quarter: 2024Q2

REPORT INFORMATION
  Report Type: Report from Study
  Country: US (occurrence: US)
  Receive Date: 20221205
  Receipt Date: 20240522
  Transmission Date: 20240716
  Serious: Yes (Hospitalization)
  Sender: FDA-Public Use
  Company Number: US-GBT-018319

PATIENT
  Age: 23 Year
  Sex: Male

DRUGS (16)
  1. VOXELOTOR [Suspect]
     Active Substance: VOXELOTOR
     Indication: Sickle cell disease
     Dosage: 1500 MG, 1X/DAY
     Dates: start: 20220408
  2. ADAKVEO [Concomitant]
     Active Substance: CRIZANLIZUMAB-TMCA
     Indication: Sickle cell disease
     Dosage: 5 MG/KG
     Route: 042
     Dates: start: 20211217
  3. MS CONTIN [Concomitant]
     Active Substance: MORPHINE SULFATE
     Indication: Sickle cell disease
     Dosage: 60 MG, 2X/DAY
     Route: 048
     Dates: start: 20220531
  4. ASPERCREME WITH LIDOCAINE [Concomitant]
     Active Substance: LIDOCAINE
     Indication: Sickle cell disease
     Dosage: 1 DF, 1X/DAY
     Route: 062
     Dates: start: 20220821
  5. PRINIVIL [Concomitant]
     Active Substance: LISINOPRIL
     Dosage: 10 MG, 1X/DAY
     Route: 048
     Dates: start: 20220401
  6. TYLENOL [Concomitant]
     Active Substance: ACETAMINOPHEN
     Indication: Sickle cell disease
     Dosage: 650 MG
     Route: 048
     Dates: start: 20211217
  7. ROXICODONE [Concomitant]
     Active Substance: OXYCODONE HYDROCHLORIDE
     Indication: Sickle cell disease
     Dosage: ED DISCHARGE MEDICATION FOR HOME PAIN MANAGEMENT (14 TABLETS PROVIDED)5-10 MG;DOSE:
     Route: 048
     Dates: start: 20220718, end: 2022
  8. ROXICODONE [Concomitant]
     Active Substance: OXYCODONE HYDROCHLORIDE
     Indication: Pain
     Dosage: 15 MG, EVERY 4 HOURS
     Route: 048
     Dates: start: 20220923
  9. ROXICODONE [Concomitant]
     Active Substance: OXYCODONE HYDROCHLORIDE
     Dosage: 10 MG, EVERY 6 HOURS
     Route: 048
     Dates: start: 20220302, end: 2022
  10. MOTRIN [Concomitant]
     Active Substance: IBUPROFEN
     Indication: Sickle cell disease
     Dosage: 600 MG, EVERY 6 HOURS
     Route: 048
     Dates: start: 20200402
  11. AMOXIL [Concomitant]
     Active Substance: AMOXICILLIN
     Indication: Prophylaxis
     Dosage: 250 MG, 2X/DAY
     Route: 048
     Dates: start: 20190322
  12. NEURONTIN [Concomitant]
     Active Substance: GABAPENTIN
     Indication: Sickle cell disease
     Dosage: 600 MG, 1X/DAY
     Route: 048
     Dates: start: 20220809
  13. PEPCID [Concomitant]
     Active Substance: FAMOTIDINE
     Indication: Sickle cell disease
     Dosage: 20 MG, 2X/DAY
     Route: 048
     Dates: start: 20220728
  14. VITAMIN D3 [Concomitant]
     Active Substance: CHOLECALCIFEROL
     Dosage: 2 TABLET/ 25 MCG (1,000 UNIT) TABLET, 1X/ DAY
     Route: 048
     Dates: start: 20220708
  15. HYDREA [Concomitant]
     Active Substance: HYDROXYUREA
     Indication: Sickle cell disease
     Dosage: 500 MG, 1X/DAY
     Route: 048
     Dates: start: 20170719
  16. FOLVITE [Concomitant]
     Active Substance: FOLIC ACID
     Indication: Sickle cell disease
     Dosage: 1 MG, 1X/DAY
     Route: 048
     Dates: start: 20121214

REACTIONS (2)
  - Sickle cell anaemia with crisis [Recovered/Resolved]
  - Sickle cell anaemia with crisis [Recovered/Resolved]

NARRATIVE: CASE EVENT DATE: 20221127
